FAERS Safety Report 22096696 (Version 1)
Quarter: 2023Q1

REPORT INFORMATION
  Report Type: Spontaneous
  Country: US (occurrence: US)
  Receive Date: 20230315
  Receipt Date: 20230315
  Transmission Date: 20230418
  Serious: No
  Sender: FDA-Public Use
  Company Number: US-UNITED THERAPEUTICS-UNT-2023-006137

PATIENT
  Age: 68 Year
  Sex: Female
  Weight: 78.912 kg

DRUGS (2)
  1. REMODULIN [Suspect]
     Active Substance: TREPROSTINIL
     Indication: Pulmonary arterial hypertension
     Dosage: 0.008 ?G/KG, CONTINUING
     Route: 041
  2. REMODULIN [Suspect]
     Active Substance: TREPROSTINIL
     Dosage: UNK, CONTINUING
     Route: 041
     Dates: start: 20230224

REACTIONS (7)
  - Oxygen saturation decreased [Unknown]
  - Headache [Recovering/Resolving]
  - Nausea [Unknown]
  - Asthenia [Unknown]
  - Dry mouth [Unknown]
  - Abdominal discomfort [Unknown]
  - Retching [Unknown]

NARRATIVE: CASE EVENT DATE: 20230201
